FAERS Safety Report 22824069 (Version 7)
Quarter: 2023Q4

REPORT INFORMATION
  Report Type: Report from Study
  Country: US (occurrence: US)
  Receive Date: 20230815
  Receipt Date: 20231026
  Transmission Date: 20240110
  Serious: Yes (Hospitalization, Other)
  Sender: FDA-Public Use
  Company Number: US-BIOVITRUM-2023-US-012951

PATIENT
  Age: 8 Year
  Sex: Female
  Weight: 31.6 kg

DRUGS (15)
  1. AVATROMBOPAG [Suspect]
     Active Substance: AVATROMBOPAG
     Indication: Immune thrombocytopenia
     Dosage: 40MG, DAILY
     Route: 048
     Dates: start: 20220824, end: 20230717
  2. FLINSTONES CHEWABLE MULTIVITAMIN WITH IRON [Concomitant]
     Indication: Iron deficiency
     Dosage: 1 TABLET
     Route: 048
     Dates: start: 20220724
  3. ACETAMINOPHEN [Concomitant]
     Active Substance: ACETAMINOPHEN
     Indication: Headache
     Dosage: 325MG, Q4HR, PRN
     Route: 048
     Dates: start: 20220926
  4. ONDANSETRON [Concomitant]
     Active Substance: ONDANSETRON
     Indication: Nausea
     Dosage: 4MG, Q8HR
     Route: 048
     Dates: start: 20230715
  5. DOTAREM [Concomitant]
     Active Substance: GADOTERATE MEGLUMINE
     Indication: Headache
     Dosage: DOSE UNK IV ONE TIME DOSE
     Route: 042
     Dates: start: 20230717
  6. MUPIROCIN [Concomitant]
     Active Substance: MUPIROCIN
     Indication: Impetigo
     Dosage: 2 PERCENT ONE APPLICATION TOPICAL ONE TIME DOSE
     Route: 061
     Dates: start: 20230717
  7. DEXTROSE, UNSPECIFIED FORM [Concomitant]
     Active Substance: DEXTROSE, UNSPECIFIED FORM
     Indication: Headache
     Dosage: 70ML/HR IV CONTINUOUS MAINTENANCE FLUIDS
     Route: 042
     Dates: start: 20230717
  8. PHENYLEPHRINE [Concomitant]
     Active Substance: PHENYLEPHRINE HYDROCHLORIDE
     Indication: Headache
     Dosage: ONE TIME DOSE FOR SEDATED MRI
     Route: 042
     Dates: start: 20230717
  9. PROPOFOL [Concomitant]
     Active Substance: PROPOFOL
     Indication: Headache
     Dosage: ONE TIME DOSE FOR SEDATED MRI
     Route: 042
     Dates: start: 20230717
  10. MAGNESIUM OXIDE [Concomitant]
     Active Substance: MAGNESIUM OXIDE
     Indication: Headache
     Dosage: 250MG, ONCE DAILY
     Route: 048
     Dates: start: 20230718
  11. VITAMIN B2 [Concomitant]
     Active Substance: RIBOFLAVIN
     Indication: Headache
     Dosage: 100MG, ONCE DAILY
     Route: 048
     Dates: start: 20230718
  12. CoQI0 [Concomitant]
     Indication: Headache
     Dosage: 100MG, ONCE DAILY
     Route: 048
     Dates: start: 20230718
  13. FLOVENT HFA [Concomitant]
     Active Substance: FLUTICASONE PROPIONATE
     Indication: Asthma
     Dosage: TWO PUFFS INH BID
     Dates: start: 20230718
  14. RIZATRIPTAN [Concomitant]
     Active Substance: RIZATRIPTAN
     Indication: Headache
     Dosage: 5MG, PRN THREE TIMES WEEKLY
     Route: 048
     Dates: start: 20230720
  15. HUMAN IMMUNOGLOBULIN G [Concomitant]
     Active Substance: HUMAN IMMUNOGLOBULIN G
     Indication: Hypogammaglobulinaemia
     Dosage: 500MG/KG, ONE TIME DOSE
     Route: 042
     Dates: start: 20230724

REACTIONS (3)
  - Paraesthesia [Recovered/Resolved]
  - Dysarthria [Recovered/Resolved]
  - Hypogammaglobulinaemia [Not Recovered/Not Resolved]

NARRATIVE: CASE EVENT DATE: 20230620
